FAERS Safety Report 10053011 (Version 2)
Quarter: 2014Q2

REPORT INFORMATION
  Report Type: Report from Study
  Country: US (occurrence: US)
  Receive Date: 20140402
  Receipt Date: 20140422
  Transmission Date: 20141212
  Serious: Yes (Hospitalization)
  Sender: FDA-Public Use
  Company Number: GXBR2014US000962

PATIENT
  Sex: Female

DRUGS (2)
  1. ENOXAPARIN SODIUM [Suspect]
     Indication: PULMONARY EMBOLISM
     Dosage: 150 MG, QD
     Route: 058
  2. CHEMOTHERAPEUTICS [Suspect]
     Dosage: UNK DF, UNK

REACTIONS (2)
  - Urinary tract infection [Unknown]
  - Lung infection [Unknown]
